FAERS Safety Report 9130812 (Version 1)
Quarter: 2013Q1

REPORT INFORMATION
  Report Type: Spontaneous
  Country: SE (occurrence: SE)
  Receive Date: 20130301
  Receipt Date: 20130301
  Transmission Date: 20140127
  Serious: Yes (Hospitalization)
  Sender: FDA-Public Use
  Company Number: SE-JNJFOC-20130213684

PATIENT
  Age: 26 Year
  Sex: Female

DRUGS (2)
  1. REMICADE [Suspect]
     Indication: CROHN^S DISEASE
     Dosage: 2ND INFUSION
     Route: 042
     Dates: start: 20120912
  2. REMICADE [Suspect]
     Indication: CROHN^S DISEASE
     Dosage: STRENGTH 100 MG
     Route: 042

REACTIONS (6)
  - Chest discomfort [Recovered/Resolved]
  - Erythema [Recovered/Resolved]
  - Choking sensation [Recovered/Resolved]
  - Hypersensitivity [Recovered/Resolved]
  - Infusion related reaction [Recovered/Resolved]
  - Exposure during pregnancy [Not Recovered/Not Resolved]
